FAERS Safety Report 17426769 (Version 2)
Quarter: 2020Q1

REPORT INFORMATION
  Report Type: Spontaneous
  Country: PT (occurrence: PT)
  Receive Date: 20200218
  Receipt Date: 20200302
  Transmission Date: 20200409
  Serious: Yes (Other)
  Sender: FDA-Public Use
  Company Number: PT-ALIMERA SCIENCES INC.-PT-IL-2020-004575

PATIENT
  Age: 86 Year
  Sex: Female

DRUGS (1)
  1. ILUVIEN [Suspect]
     Active Substance: FLUOCINOLONE ACETONIDE
     Indication: CYSTOID MACULAR OEDEMA
     Dosage: 0.25 ?G, QD - LEFT EYE
     Route: 031
     Dates: start: 20191120

REACTIONS (4)
  - Off label use [Unknown]
  - Medical device repositioning [Recovered/Resolved]
  - Corneal decompensation [Recovering/Resolving]
  - Device dislocation [Unknown]

NARRATIVE: CASE EVENT DATE: 2019
